FAERS Safety Report 6428657-4 (Version None)
Quarter: 2009Q4

REPORT INFORMATION
  Report Type: 
  Country: None (occurrence: None)
  Receive Date: 20091105
  Receipt Date: 20091029
  Transmission Date: 20100525
  Serious: Yes (Other)
  Sender: FDA-Public Use
  Company Number: ES-PFIZER INC-2009290779

PATIENT
  Age: 23 Year
  Sex: Female
  Weight: 62 kg

DRUGS (1)
  1. PREVENCOR [Suspect]
     Dosage: 10 MG, 1X/DAY
     Route: 048
     Dates: start: 20090203, end: 20091003

REACTIONS (3)
  - RASH ERYTHEMATOUS [None]
  - RASH PAPULAR [None]
  - STEVENS-JOHNSON SYNDROME [None]
